FAERS Safety Report 25489753 (Version 1)
Quarter: 2025Q2

REPORT INFORMATION
  Report Type: Spontaneous
  Country: CN (occurrence: CN)
  Receive Date: 20250627
  Receipt Date: 20250627
  Transmission Date: 20250717
  Serious: Yes (Other)
  Sender: BRISTOL-MYERS SQUIBB COMPANY
  Company Number: CN-BRISTOL-MYERS SQUIBB COMPANY-2025-089067

PATIENT
  Age: 50 Year
  Sex: Male

DRUGS (2)
  1. LENALIDOMIDE [Suspect]
     Active Substance: LENALIDOMIDE
     Indication: Langerhans^ cell histiocytosis
     Dosage: 25 MG/D (D1-D14, 28-DAY CYCLE)
     Dates: start: 202107
  2. LENALIDOMIDE [Suspect]
     Active Substance: LENALIDOMIDE
     Dosage: RE-INITIATED AT 5 MG/D.
     Dates: start: 202407

REACTIONS (2)
  - Vasculitis [Unknown]
  - Off label use [Unknown]
